FAERS Safety Report 6465061-7 (Version None)
Quarter: 2009Q4

REPORT INFORMATION
  Report Type: 
  Country: None (occurrence: None)
  Receive Date: 20091201
  Receipt Date: 20091127
  Transmission Date: 20100525
  Serious: Yes (Life-Threatening)
  Sender: FDA-Public Use
  Company Number: US-B.I. PHARMACEUTICALS,INC./RIDGEFIELD-2009-BP-13767BP

PATIENT
  Age: 47 Year
  Sex: Male

DRUGS (4)
  1. SPIRIVA [Suspect]
     Indication: CHRONIC OBSTRUCTIVE PULMONARY DISEASE
     Dosage: 18 MCG
     Route: 055
     Dates: start: 20020101, end: 20020101
  2. SPIRIVA [Suspect]
     Indication: BRONCHITIS
  3. COMBIVENT [Concomitant]
     Indication: BRONCHITIS
     Dates: start: 20000101
  4. ALBUTEROL [Concomitant]
     Indication: BRONCHITIS
     Dates: start: 20000101

REACTIONS (4)
  - ANAPHYLACTIC SHOCK [None]
  - LIP DISCOLOURATION [None]
  - SWOLLEN TONGUE [None]
  - URTICARIA [None]
